FAERS Safety Report 17999905 (Version 6)
Quarter: 2022Q1

REPORT INFORMATION
  Report Type: Spontaneous
  Country: US (occurrence: US)
  Receive Date: 20200709
  Receipt Date: 20220104
  Transmission Date: 20220423
  Serious: Yes (Other)
  Sender: FDA-Public Use
  Company Number: US-PFIZER INC-2020262323

PATIENT
  Age: 85 Year

DRUGS (2)
  1. PREMARIN [Suspect]
     Active Substance: ESTROGENS, CONJUGATED
     Dosage: 2 G, AS NEEDED (INSERT 1 APPLICATOR)
     Route: 067
  2. PREMARIN [Suspect]
     Active Substance: ESTROGENS, CONJUGATED
     Dosage: 1 G, AS NEEDED, [INSERT 1 APPLICATOR OTHER PRN (AS NEEDED) 1 GM INTRAVAGINALLY ONCE OR TWICE A WEEK]
     Route: 067

REACTIONS (4)
  - Loss of consciousness [Unknown]
  - Hypoacusis [Unknown]
  - Off label use [Unknown]
  - Product prescribing error [Unknown]
